FAERS Safety Report 8387067-3 (Version None)
Quarter: 2012Q2

REPORT INFORMATION
  Report Type: 
  Country: None (occurrence: None)
  Receive Date: 20120525
  Receipt Date: 20120518
  Transmission Date: 20120825
  Serious: Yes (Hospitalization)
  Sender: FDA-Public Use
  Company Number: US-ACTELION-A-NJ2012-66072

PATIENT

DRUGS (5)
  1. COUMADIN [Concomitant]
  2. TRACLEER [Suspect]
     Indication: PULMONARY ARTERIAL HYPERTENSION
     Dosage: UNK
     Route: 048
     Dates: start: 20120224, end: 20120101
  3. ASPIRIN [Concomitant]
  4. CALCIUM CHANNEL BLOCKERS [Concomitant]
  5. SILDENAFIL [Concomitant]

REACTIONS (1)
  - AMPUTATION [None]
